FAERS Safety Report 6015647-9 (Version None)
Quarter: 2008Q4

REPORT INFORMATION
  Report Type: 
  Country: None (occurrence: None)
  Receive Date: 20081222
  Receipt Date: 20081121
  Transmission Date: 20090506
  Serious: No
  Sender: FDA-Public Use
  Company Number: US-BAYER-200814575BCC

PATIENT
  Age: 81 Year
  Sex: Female
  Weight: 52 kg

DRUGS (8)
  1. ALEVE (CAPLET) [Suspect]
     Indication: HERPES ZOSTER
     Route: 048
     Dates: start: 20081017
  2. ALTACE [Concomitant]
  3. ADVIL PM [Concomitant]
  4. LOVASTATIN [Concomitant]
  5. LIDOCAINE [Concomitant]
  6. VITAMIN D [Concomitant]
  7. ASCORBIC ACID [Concomitant]
  8. FISH OIL [Concomitant]

REACTIONS (1)
  - BLOOD PRESSURE SYSTOLIC INCREASED [None]
